FAERS Safety Report 7528328-7 (Version None)
Quarter: 2011Q2

REPORT INFORMATION
  Report Type: 
  Country: None (occurrence: None)
  Receive Date: 20110607
  Receipt Date: 20110601
  Transmission Date: 20111010
  Serious: Yes (Other)
  Sender: FDA-Public Use
  Company Number: US-SANOFI-AVENTIS-2011SA035217

PATIENT
  Sex: Female

DRUGS (2)
  1. FEXOFENADINE HCL [Suspect]
     Route: 065
  2. ALLEGRA [Suspect]
     Route: 065

REACTIONS (1)
  - GLAUCOMA [None]
